FAERS Safety Report 9678843 (Version 1)
Quarter: 2013Q4

REPORT INFORMATION
  Report Type: Spontaneous
  Country: DE (occurrence: DE)
  Receive Date: 20131108
  Receipt Date: 20131108
  Transmission Date: 20140711
  Serious: Yes (Hospitalization, Congenital Anomaly, Other)
  Sender: FDA-Public Use
  Company Number: DE-GLAXOSMITHKLINE-D0081677B

PATIENT
  Age: 0 None
  Sex: Male
  Weight: 2.9 kg

DRUGS (4)
  1. LAMOTRIGINE [Suspect]
     Indication: EPILEPSY
     Dosage: 200MG TWICE PER DAY
     Route: 064
  2. LEVETIRACETAM [Suspect]
     Indication: EPILEPSY
     Dosage: 1350MG PER DAY
     Route: 064
  3. SUFENTANIL [Concomitant]
     Indication: PAIN
     Route: 064
  4. ROPIVACAINE [Concomitant]
     Indication: PAIN
     Route: 064

REACTIONS (13)
  - Patent ductus arteriosus [Recovered/Resolved]
  - Portal vein thrombosis [Recovered/Resolved]
  - Feeding disorder neonatal [Recovered/Resolved]
  - Apnoea [Recovered/Resolved]
  - Neonatal pneumonia [Recovered/Resolved]
  - Pulmonary hypertension [Recovered/Resolved]
  - Agitation neonatal [Recovered/Resolved]
  - Cardiomyopathy [Recovered/Resolved]
  - Right ventricular hypertrophy [Recovered/Resolved]
  - Cardiac septal hypertrophy [Recovering/Resolving]
  - Hypertonia [Recovered/Resolved]
  - Rash maculo-papular [Recovered/Resolved]
  - Withdrawal syndrome [Recovered/Resolved]
